FAERS Safety Report 9239986 (Version 2)
Quarter: 2013Q3

REPORT INFORMATION
  Report Type: Spontaneous
  Country: BR (occurrence: BR)
  Receive Date: 20130418
  Receipt Date: 20130725
  Transmission Date: 20140515
  Serious: Yes (Hospitalization)
  Sender: FDA-Public Use
  Company Number: BR-GLAXOSMITHKLINE-A1020540A

PATIENT
  Age: 81 Year
  Sex: Male
  Weight: 59 kg

DRUGS (9)
  1. AVODART [Suspect]
     Indication: BENIGN PROSTATIC HYPERPLASIA
     Dosage: .5MG PER DAY
     Route: 048
     Dates: start: 2010
  2. ARADOIS [Concomitant]
     Dosage: 50MG IN THE MORNING
     Route: 048
     Dates: start: 201104
  3. ATORVASTATIN [Concomitant]
     Dosage: 20MG PER DAY
     Route: 048
     Dates: start: 201104
  4. SELOZOK [Concomitant]
     Dosage: 100MG PER DAY
     Route: 048
     Dates: start: 201104
  5. DIOVAN [Concomitant]
     Dosage: 1TAB IN THE MORNING
     Route: 048
     Dates: start: 201104
  6. METFORMIN [Concomitant]
     Dosage: 500MG THREE TIMES PER DAY
     Route: 048
     Dates: start: 201104
  7. ALPRAZOLAM [Concomitant]
     Dosage: .5MG AT NIGHT
     Route: 048
     Dates: start: 201104
  8. CENTRUM [Concomitant]
     Dosage: 1TAB ALTERNATE DAYS
     Route: 048
     Dates: start: 201101
  9. NUTRITIONAL SUPPLEMENT [Concomitant]
     Dosage: 4SP IN THE MORNING
     Route: 048
     Dates: start: 201101

REACTIONS (5)
  - Infarction [Recovered/Resolved]
  - Type 2 diabetes mellitus [Unknown]
  - Stent placement [Unknown]
  - Weight decreased [Recovered/Resolved]
  - Muscle atrophy [Unknown]
